FAERS Safety Report 7130332-8 (Version None)
Quarter: 2010Q4

REPORT INFORMATION
  Report Type: 
  Country: None (occurrence: None)
  Receive Date: 20101201
  Receipt Date: 20101028
  Transmission Date: 20110411
  Serious: Yes (Hospitalization)
  Sender: FDA-Public Use
  Company Number: GB-AMGEN-GBRCT2010001967

PATIENT

DRUGS (14)
  1. ETANERCEPT [Suspect]
     Indication: RHEUMATOID ARTHRITIS
     Dosage: 25 MG, 2 TIMES/WK
     Dates: start: 20050921
  2. PREDNISOLONE [Concomitant]
     Dosage: UNKNOWN
  3. ASPIRIN [Concomitant]
     Dosage: UNKNOWN
  4. ATENOLOL [Concomitant]
     Dosage: UNKNOWN
  5. BENDROFLUAZIDE [Concomitant]
     Dosage: UNKNOWN
  6. ACETAMINOPHEN WITH PROPOXYPHENE HCL TAB [Concomitant]
     Dosage: UNKNOWN
  7. SENNA [Concomitant]
     Dosage: UNKNOWN
  8. FOLIC ACID [Concomitant]
     Dosage: UNKNOWN
  9. GAVISCON [Concomitant]
     Dosage: UNKNOWN
  10. HYPROMELLOSE [Concomitant]
     Dosage: UNKNOWN
  11. INDOMETHACIN [Concomitant]
     Dosage: UNKNOWN
  12. LISINOPRIL [Concomitant]
     Dosage: UNKNOWN
  13. PANTOPRAZOLE [Concomitant]
     Dosage: UNKNOWN
  14. FERROUS GLUCONATE [Concomitant]
     Dosage: UNKNOWN

REACTIONS (1)
  - TACHYCARDIA [None]
